FAERS Safety Report 10562713 (Version 1)
Quarter: 2014Q4

REPORT INFORMATION
  Report Type: Spontaneous
  Country: US (occurrence: None)
  Receive Date: 20141103
  Receipt Date: 20141103
  Transmission Date: 20150529
  Serious: Yes (Life-Threatening, Hospitalization)
  Sender: FDA-Public Use
  Company Number: None

PATIENT
  Age: 70 Year
  Sex: Female
  Weight: 54 kg

DRUGS (1)
  1. HYDROMORPHONE [Suspect]
     Active Substance: HYDROMORPHONE
     Indication: BACK PAIN

REACTIONS (5)
  - Lethargy [None]
  - Hallucination [None]
  - Somnolence [None]
  - Acute respiratory failure [None]
  - Confusional state [None]

NARRATIVE: CASE EVENT DATE: 20140917
